FAERS Safety Report 18020859 (Version 3)
Quarter: 2020Q3

REPORT INFORMATION
  Report Type: Other
  Country: US (occurrence: US)
  Receive Date: 20200714
  Receipt Date: 20200826
  Transmission Date: 20201103
  Serious: Yes (Death, Other)
  Sender: FDA-Public Use
  Company Number: US-ACORDA-ACO_165535_2020

PATIENT
  Sex: Male

DRUGS (3)
  1. AMPYRA [Suspect]
     Active Substance: DALFAMPRIDINE
     Indication: GAIT DISTURBANCE
     Dosage: 10 MILLIGRAM, BID
     Route: 048
  2. DALFAMPRIDINE. [Suspect]
     Active Substance: DALFAMPRIDINE
     Indication: PRODUCT USED FOR UNKNOWN INDICATION
     Dosage: UNK
     Route: 065
  3. AMPYRA [Suspect]
     Active Substance: DALFAMPRIDINE
     Indication: MULTIPLE SCLEROSIS

REACTIONS (1)
  - COVID-19 [Fatal]

NARRATIVE: CASE EVENT DATE: 20200506
